FAERS Safety Report 4828535-8 (Version None)
Quarter: 2005Q4

REPORT INFORMATION
  Report Type: 
  Country: None (occurrence: None)
  Receive Date: 20051110
  Receipt Date: 20051101
  Transmission Date: 20060501
  Serious: Yes (Other)
  Sender: FDA-Public Use
  Company Number: CHNY2005JP02028

PATIENT
  Age: 69 Year
  Sex: Male

DRUGS (1)
  1. PURSENNID (NCH)(SENNA GLYCOSIDES (CA SALTS OF PURIFIED SENNA EXTRACT) [Suspect]
     Indication: CONSTIPATION
     Dosage: 3 DF, QD, ORAL
     Route: 048

REACTIONS (3)
  - BLOOD SODIUM INCREASED [None]
  - FLUID RETENTION [None]
  - INAPPROPRIATE ANTIDIURETIC HORMONE SECRETION [None]
